FAERS Safety Report 10241697 (Version 1)
Quarter: 2014Q2

REPORT INFORMATION
  Report Type: Spontaneous
  Country: US (occurrence: None)
  Receive Date: 20140613
  Receipt Date: 20140613
  Transmission Date: 20141212
  Serious: Yes (Hospitalization)
  Sender: FDA-Public Use
  Company Number: UNT-2014-001668

PATIENT
  Age: 54 Year
  Sex: Male
  Weight: 77.1 kg

DRUGS (2)
  1. REMODULIN [Suspect]
     Indication: COR PULMONALE CHRONIC
     Route: 058
     Dates: start: 20130125
  2. LETAIRIS [Concomitant]

REACTIONS (6)
  - Infusion site infection [None]
  - Injection site cellulitis [None]
  - Cardiac failure [None]
  - Injection site pain [None]
  - Infusion site warmth [None]
  - Infusion site erythema [None]
